FAERS Safety Report 5376284-2 (Version None)
Quarter: 2007Q2

REPORT INFORMATION
  Report Type: 
  Country: None (occurrence: None)
  Receive Date: 20070627
  Receipt Date: 20070627
  Transmission Date: 20071010
  Serious: No
  Sender: FDA-Public Use
  Company Number: None

PATIENT
  Age: 30 Year
  Sex: Female
  Weight: 88.8 kg

DRUGS (14)
  1. TRIMETHOPRIM + SULFAMETHOXAZOLE [Suspect]
     Dosage: 150/800MG TAB - 2 PO TID
     Route: 048
     Dates: start: 20061021
  2. GANCICLOVIR [Concomitant]
  3. ZOLPIDEM TARTRATE [Concomitant]
  4. LEUCOVORIN CALCIUM [Concomitant]
  5. BACTRIM DS [Concomitant]
  6. PREDNISONE TAB [Concomitant]
  7. TYLENOL [Concomitant]
  8. OMEPRAZOLE [Concomitant]
  9. ATORVASTATIN [Concomitant]
  10. LEVOTHYROXINE SODIUM [Concomitant]
  11. VALTREX [Concomitant]
  12. VERAPAMIL [Concomitant]
  13. POSACONAZOLE [Concomitant]
  14. CALCIUM CARB/VIT D [Concomitant]

REACTIONS (2)
  - CONTUSION [None]
  - PRURITUS [None]
